FAERS Safety Report 8417650-8 (Version None)
Quarter: 2012Q2

REPORT INFORMATION
  Report Type: 
  Country: None (occurrence: None)
  Receive Date: 20120606
  Receipt Date: 20120601
  Transmission Date: 20120825
  Serious: Yes (Other)
  Sender: FDA-Public Use
  Company Number: US-AMGEN-USASP2012026154

PATIENT
  Age: 53 Year
  Sex: Male
  Weight: 81.179 kg

DRUGS (6)
  1. PREDNISONE TAB [Concomitant]
     Dosage: 10 MG, QD
     Route: 048
  2. EPOGEN [Suspect]
     Indication: RENAL FAILURE CHRONIC
     Dosage: 20000 UNIT, QWK
     Dates: start: 20091209
  3. RENVELA [Concomitant]
     Dosage: 800 MG, TID
  4. EPOGEN [Suspect]
     Dosage: 20000 UNIT, 3 TIMES/WK
     Route: 058
     Dates: start: 20120116
  5. FOLIC ACID [Concomitant]
     Dosage: 1 MG, QD
  6. DANAZOL [Concomitant]
     Dosage: 200 MG, BID
     Route: 048

REACTIONS (4)
  - THERAPEUTIC RESPONSE DECREASED [None]
  - MYELOFIBROSIS [None]
  - ANTI-ERYTHROPOIETIN ANTIBODY POSITIVE [None]
  - HAEMOGLOBIN DECREASED [None]
